FAERS Safety Report 12206148 (Version 6)
Quarter: 2016Q2

REPORT INFORMATION
  Report Type: Report from Study
  Country: JP (occurrence: JP)
  Receive Date: 20160324
  Receipt Date: 20160406
  Transmission Date: 20160815
  Serious: Yes (Hospitalization)
  Sender: FDA-Public Use
  Company Number: JP-BIOGEN-2016BI00204990

PATIENT
  Age: 41 Year
  Sex: Male
  Weight: 78 kg

DRUGS (9)
  1. ONEALFA [Concomitant]
     Active Substance: ALFACALCIDOL
     Indication: MULTIPLE SCLEROSIS
     Route: 048
     Dates: start: 20120726
  2. MUCOSTA [Concomitant]
     Active Substance: REBAMIPIDE
     Indication: GASTRITIS PROPHYLAXIS
     Route: 048
     Dates: start: 20130510
  3. VESICARE [Concomitant]
     Active Substance: SOLIFENACIN SUCCINATE
     Indication: MULTIPLE SCLEROSIS
     Route: 048
     Dates: start: 20130822
  4. SODIUM PICOSULFATE HYDRATE [Concomitant]
     Indication: CONSTIPATION
     Route: 048
     Dates: start: 20141125
  5. BIIB041 [Suspect]
     Active Substance: DALFAMPRIDINE
     Indication: MULTIPLE SCLEROSIS
     Route: 048
     Dates: start: 20131210
  6. LOXONIN [Concomitant]
     Active Substance: LOXOPROFEN SODIUM
     Indication: INTERVERTEBRAL DISC PROTRUSION
     Route: 048
     Dates: start: 20130510
  7. MOHRUS TAPE L [Concomitant]
     Indication: INTERVERTEBRAL DISC PROTRUSION
     Route: 062
     Dates: start: 20121101
  8. TYSABRI [Concomitant]
     Active Substance: NATALIZUMAB
     Indication: MULTIPLE SCLEROSIS
     Route: 041
     Dates: start: 20150721
  9. METHYCOBAL [Concomitant]
     Active Substance: METHYLCOBALAMIN
     Indication: MULTIPLE SCLEROSIS
     Route: 048
     Dates: start: 20141125

REACTIONS (1)
  - Thyroid disorder [Recovered/Resolved]

NARRATIVE: CASE EVENT DATE: 20160315
